FAERS Safety Report 17233351 (Version 1)
Quarter: 2020Q1

REPORT INFORMATION
  Report Type: Spontaneous
  Country: DE (occurrence: DE)
  Receive Date: 20200104
  Receipt Date: 20200104
  Transmission Date: 20200409
  Serious: Yes (Hospitalization)
  Sender: FDA-Public Use
  Company Number: DE-TEVA-2019-DE-1161147

PATIENT
  Age: 75 Year
  Sex: Male

DRUGS (4)
  1. LEUCOVORIN. [Suspect]
     Active Substance: LEUCOVORIN
     Dosage: LAST ON OCTOBER 17, 2019
     Dates: end: 20191017
  2. FLUOROURACIL. [Suspect]
     Active Substance: FLUOROURACIL
     Dosage: LAST ON OCTOBER 17, 2019
     Dates: end: 20191017
  3. ENOXAPARIN [Concomitant]
     Active Substance: ENOXAPARIN
     Dosage: 40 MG, 1-0-0-0, PRE-FILLED SYRINGES , 1 DOSAGE FORMS 1 DAYS
     Route: 058
  4. METFORMIN [Concomitant]
     Active Substance: METFORMIN HYDROCHLORIDE
     Dosage: 1000 MG, 1-0-1-0 , 1000 MG 12 HOURS

REACTIONS (2)
  - Oropharyngeal pain [Unknown]
  - Dysphagia [Unknown]

NARRATIVE: CASE EVENT DATE: 20191017
